FAERS Safety Report 4832688-5 (Version None)
Quarter: 2005Q4

REPORT INFORMATION
  Report Type: 
  Country: None (occurrence: None)
  Receive Date: 20051121
  Receipt Date: 20050912
  Transmission Date: 20060501
  Serious: Yes (Other)
  Sender: FDA-Public Use
  Company Number: PHHO2005CL14436

PATIENT
  Sex: Female

DRUGS (1)
  1. ELIDEL [Suspect]
     Indication: DERMATITIS
     Dosage: APPLIED ONCE DAILY
     Route: 061
     Dates: start: 20050701

REACTIONS (2)
  - SKIN CANCER [None]
  - SURGERY [None]
